FAERS Safety Report 8965930 (Version 1)
Quarter: 2012Q4

REPORT INFORMATION
  Report Type: 
  Country: US (occurrence: US)
  Receive Date: 20121214
  Receipt Date: 20121214
  Transmission Date: 20130627
  Serious: No
  Sender: FDA-Public Use
  Company Number: US-PFIZER INC-2012317761

PATIENT
  Age: 49 Year
  Sex: Male
  Weight: 145.13 kg

DRUGS (2)
  1. LYRICA [Suspect]
     Indication: FIBROMYALGIA
     Dosage: 50 mg, 1x/day
     Route: 048
     Dates: start: 201212
  2. CLONAZEPAM [Concomitant]
     Indication: SLEEP PROBLEM
     Dosage: 1 mg, 1x/day
     Dates: start: 2011

REACTIONS (2)
  - Vision blurred [Not Recovered/Not Resolved]
  - Headache [Not Recovered/Not Resolved]
